FAERS Safety Report 8997758 (Version 2)
Quarter: 2015Q1

REPORT INFORMATION
  Report Type: Report from Study
  Country: HU (occurrence: HU)
  Receive Date: 20130104
  Receipt Date: 20150219
  Transmission Date: 20150721
  Serious: Yes (Death, Hospitalization)
  Sender: FDA-Public Use
  Company Number: HU-TEVA-378969USA

PATIENT
  Age: 50 Year
  Sex: Female

DRUGS (7)
  1. BENDAMUSTINE [Suspect]
     Active Substance: BENDAMUSTINE
     Indication: B-CELL LYMPHOMA
     Dosage: CYCLIC
     Route: 042
     Dates: start: 20120216
  2. BENDAMUSTINE [Suspect]
     Active Substance: BENDAMUSTINE
     Dosage: CYCLIC
     Route: 042
     Dates: start: 20120324
  3. FUROSEMIDE. [Concomitant]
     Active Substance: FUROSEMIDE
     Indication: OEDEMA PERIPHERAL
  4. RITUXIMAB [Suspect]
     Active Substance: RITUXIMAB
     Indication: B-CELL LYMPHOMA
     Dosage: CYCLIC
     Route: 042
     Dates: start: 20120216
  5. FUROSEMIDE. [Concomitant]
     Active Substance: FUROSEMIDE
     Indication: SKIN OEDEMA
     Dates: start: 20120207, end: 20120430
  6. RITUXIMAB [Suspect]
     Active Substance: RITUXIMAB
     Dosage: CYCLIC
     Route: 042
     Dates: start: 20120323
  7. KALDYUM [Concomitant]
     Active Substance: POTASSIUM CHLORIDE
     Indication: BLOOD POTASSIUM INCREASED
     Dates: start: 20120207, end: 20120430

REACTIONS (1)
  - Autoimmune haemolytic anaemia [Fatal]

NARRATIVE: CASE EVENT DATE: 20120412
